FAERS Safety Report 8409493-6 (Version None)
Quarter: 2012Q2

REPORT INFORMATION
  Report Type: 
  Country: None (occurrence: None)
  Receive Date: 20120531
  Receipt Date: 20120531
  Transmission Date: 20120825
  Serious: Yes (Other)
  Sender: FDA-Public Use
  Company Number: None

PATIENT
  Sex: Male
  Weight: 85.2762 kg

DRUGS (1)
  1. WARFARIN SODIUM [Suspect]
     Indication: ATRIAL FIBRILLATION
     Dosage: 5 MG DAILY ORAL
     Route: 048
     Dates: start: 20120403, end: 20120510

REACTIONS (3)
  - PRODUCT SUBSTITUTION ISSUE [None]
  - PRODUCT QUALITY ISSUE [None]
  - INTERNATIONAL NORMALISED RATIO DECREASED [None]
